FAERS Safety Report 7640487-4 (Version None)
Quarter: 2011Q3

REPORT INFORMATION
  Report Type: 
  Country: None (occurrence: None)
  Receive Date: 20110728
  Receipt Date: 20110718
  Transmission Date: 20111222
  Serious: No
  Sender: FDA-Public Use
  Company Number: US-BIOGENIDEC-2011BI026831

PATIENT
  Sex: Female

DRUGS (1)
  1. TYSABRI [Suspect]
     Indication: MULTIPLE SCLEROSIS
     Route: 042
     Dates: start: 20110715

REACTIONS (5)
  - MUSCULOSKELETAL DISCOMFORT [None]
  - SWELLING [None]
  - NAUSEA [None]
  - CONSTIPATION [None]
  - ABDOMINAL DISTENSION [None]
